FAERS Safety Report 12714253 (Version 2)
Quarter: 2019Q4

REPORT INFORMATION
  Report Type: Spontaneous
  Country: US (occurrence: US)
  Receive Date: 20160905
  Receipt Date: 20191217
  Transmission Date: 20200122
  Serious: No
  Sender: FDA-Public Use
  Company Number: US-JAZZ-2016-US-008838

PATIENT
  Sex: Female

DRUGS (40)
  1. ACETYLCYSTEINE. [Concomitant]
     Active Substance: ACETYLCYSTEINE
  2. IBUPROFEN. [Concomitant]
     Active Substance: IBUPROFEN
  3. DOXEPIN [Concomitant]
     Active Substance: DOXEPIN
  4. CLONAZEPAM. [Concomitant]
     Active Substance: CLONAZEPAM
  5. ATIVAN [Concomitant]
     Active Substance: LORAZEPAM
  6. TRAMADOL HCL [Concomitant]
     Active Substance: TRAMADOL HYDROCHLORIDE
  7. CALCIUM CARBONATE. [Concomitant]
     Active Substance: CALCIUM CARBONATE
  8. COENZYME Q10 [Concomitant]
     Active Substance: UBIDECARENONE
  9. VIT D [Concomitant]
     Active Substance: VITAMIN D NOS
  10. ALPHA LIPOIC ACID [Concomitant]
     Active Substance: .ALPHA.-LIPOIC ACID
  11. SUMATRIPTAN SUCCINATE. [Concomitant]
     Active Substance: SUMATRIPTAN SUCCINATE
  12. ROZEREM [Concomitant]
     Active Substance: RAMELTEON
  13. XYREM [Suspect]
     Active Substance: SODIUM OXYBATE
     Dosage: 4.5 G, BID
     Route: 048
     Dates: start: 201704
  14. FISH OIL CONCENTRATE [Concomitant]
     Active Substance: FISH OIL
  15. SKELAXINE [Concomitant]
     Active Substance: ACETAMINOPHEN\CHLORZOXAZONE
  16. PERCOCET [Concomitant]
     Active Substance: ACETAMINOPHEN\OXYCODONE HYDROCHLORIDE
  17. TOPAMAX [Concomitant]
     Active Substance: TOPIRAMATE
  18. ROBAXIN [Concomitant]
     Active Substance: METHOCARBAMOL
  19. TYLENOL 8HR [Concomitant]
     Active Substance: ACETAMINOPHEN
  20. XYREM [Suspect]
     Active Substance: SODIUM OXYBATE
     Dosage: 2.25 G, BID
     Route: 048
     Dates: start: 201703, end: 2017
  21. ESTRADIOL. [Concomitant]
     Active Substance: ESTRADIOL
  22. SEROQUEL [Concomitant]
     Active Substance: QUETIAPINE FUMARATE
  23. VICODIN [Concomitant]
     Active Substance: ACETAMINOPHEN\HYDROCODONE BITARTRATE
  24. CYMBALTA [Concomitant]
     Active Substance: DULOXETINE HYDROCHLORIDE
  25. NALTREXONE [Concomitant]
     Active Substance: NALTREXONE
  26. CHERATUSSIN AC [Concomitant]
     Active Substance: CODEINE PHOSPHATE\GUAIFENESIN
  27. PROGESTERONE. [Concomitant]
     Active Substance: PROGESTERONE
  28. ZOLPIDEM [Concomitant]
     Active Substance: ZOLPIDEM TARTRATE
  29. GABAPENTIN. [Concomitant]
     Active Substance: GABAPENTIN
  30. XYREM [Suspect]
     Active Substance: SODIUM OXYBATE
     Dosage: 6 G, BID
     Route: 048
     Dates: start: 201109, end: 201201
  31. CETIRIZINE HYDROCHLORIDE. [Concomitant]
     Active Substance: CETIRIZINE HYDROCHLORIDE
  32. ULTRAM ER [Concomitant]
     Active Substance: TRAMADOL HYDROCHLORIDE
  33. XYREM [Suspect]
     Active Substance: SODIUM OXYBATE
     Indication: CHRONIC FATIGUE SYNDROME
     Dosage: 4.5 G, BID
     Route: 048
     Dates: start: 201005, end: 201109
  34. XYREM [Suspect]
     Active Substance: SODIUM OXYBATE
     Dosage: 4.5 G, BID
     Route: 048
     Dates: start: 201201
  35. XYREM [Suspect]
     Active Substance: SODIUM OXYBATE
     Dosage: 4.5 G, BID
     Route: 048
     Dates: start: 201201, end: 2016
  36. DILAUDID [Concomitant]
     Active Substance: HYDROMORPHONE HYDROCHLORIDE
  37. LUNESTA [Concomitant]
     Active Substance: ESZOPICLONE
  38. BUSPIRONE [Concomitant]
     Active Substance: BUSPIRONE HYDROCHLORIDE
  39. TRAZODONE [Concomitant]
     Active Substance: TRAZODONE HYDROCHLORIDE
  40. HYDROXYZINE [Concomitant]
     Active Substance: HYDROXYZINE HYDROCHLORIDE

REACTIONS (1)
  - Blood pressure increased [Recovered/Resolved]
